FAERS Safety Report 21605465 (Version 1)
Quarter: 2022Q4

REPORT INFORMATION
  Report Type: Spontaneous
  Country: JP (occurrence: JP)
  Receive Date: 20221116
  Receipt Date: 20221116
  Transmission Date: 20230113
  Serious: Yes (Other)
  Sender: FDA-Public Use
  Company Number: A202200805-001

PATIENT
  Sex: Male

DRUGS (18)
  1. BENDAMUSTINE HYDROCHLORIDE [Suspect]
     Active Substance: BENDAMUSTINE HYDROCHLORIDE
     Indication: Diffuse large B-cell lymphoma
     Dosage: UNK, CYCLE 1 PBR THERAPY
     Route: 042
  2. BENDAMUSTINE HYDROCHLORIDE [Suspect]
     Active Substance: BENDAMUSTINE HYDROCHLORIDE
     Dosage: UNK, CYCLE 2 PBR THERAPY
     Route: 042
  3. BENDAMUSTINE HYDROCHLORIDE [Suspect]
     Active Substance: BENDAMUSTINE HYDROCHLORIDE
     Dosage: UNK, CYCLE 3 PBR THERAPY
     Route: 042
  4. BENDAMUSTINE HYDROCHLORIDE [Suspect]
     Active Substance: BENDAMUSTINE HYDROCHLORIDE
     Dosage: UNK, CYCLE 4 PBR THERAPY
     Route: 042
  5. BENDAMUSTINE HYDROCHLORIDE [Suspect]
     Active Substance: BENDAMUSTINE HYDROCHLORIDE
     Dosage: UNK, CYCLE 5 PBR THERAPY
     Route: 042
  6. BENDAMUSTINE HYDROCHLORIDE [Suspect]
     Active Substance: BENDAMUSTINE HYDROCHLORIDE
     Dosage: UNK, CYCLE 6 PBR THERAPY
     Route: 042
  7. RITUXAN [Concomitant]
     Active Substance: RITUXIMAB
     Indication: Diffuse large B-cell lymphoma
     Dosage: UNK, CYCLE 1 PBR THERAPY
     Route: 042
  8. RITUXAN [Concomitant]
     Active Substance: RITUXIMAB
     Dosage: UNK, CYCLE 2 PBR THERAPY
     Route: 042
  9. RITUXAN [Concomitant]
     Active Substance: RITUXIMAB
     Dosage: UNK, CYCLE 3 PBR THERAPY
     Route: 042
  10. RITUXAN [Concomitant]
     Active Substance: RITUXIMAB
     Dosage: UNK, CYCLE 4 PBR THERAPY
     Route: 042
  11. RITUXAN [Concomitant]
     Active Substance: RITUXIMAB
     Dosage: UNK, CYCLE 5 PBR THERAPY
     Route: 042
  12. RITUXAN [Concomitant]
     Active Substance: RITUXIMAB
     Dosage: UNK, CYCLE 6 PBR THERAPY
     Route: 042
  13. POLIVY [Concomitant]
     Active Substance: POLATUZUMAB VEDOTIN-PIIQ
     Indication: Diffuse large B-cell lymphoma
     Dosage: UNK, CYCLE 1 PBR THERAPY
     Route: 042
  14. POLIVY [Concomitant]
     Active Substance: POLATUZUMAB VEDOTIN-PIIQ
     Dosage: UNK, CYCLE 2 PBR THERAPY
     Route: 042
  15. POLIVY [Concomitant]
     Active Substance: POLATUZUMAB VEDOTIN-PIIQ
     Dosage: UNK, CYCLE 3 PBR THERAPY
     Route: 042
  16. POLIVY [Concomitant]
     Active Substance: POLATUZUMAB VEDOTIN-PIIQ
     Dosage: UNK, CYCLE 4 PBR THERAPY
     Route: 042
  17. POLIVY [Concomitant]
     Active Substance: POLATUZUMAB VEDOTIN-PIIQ
     Dosage: UNK, CYCLE 5 PBR THERAPY
     Route: 042
  18. POLIVY [Concomitant]
     Active Substance: POLATUZUMAB VEDOTIN-PIIQ
     Dosage: UNK, CYCLE 6 PBR THERAPY
     Route: 042

REACTIONS (2)
  - Prinzmetal angina [Recovered/Resolved]
  - Stress cardiomyopathy [Recovered/Resolved]
